FAERS Safety Report 21247368 (Version 1)
Quarter: 2022Q3

REPORT INFORMATION
  Report Type: Spontaneous
  Country: US (occurrence: US)
  Receive Date: 20220824
  Receipt Date: 20220824
  Transmission Date: 20221027
  Serious: No
  Sender: FDA-Public Use
  Company Number: US-BIOVITRUM-2022US09770

PATIENT
  Age: 0 Year
  Sex: Female
  Weight: 5 kg

DRUGS (1)
  1. SYNAGIS [Suspect]
     Active Substance: PALIVIZUMAB
     Indication: Bronchopulmonary dysplasia
     Dates: start: 202208

REACTIONS (1)
  - Miliaria [Not Recovered/Not Resolved]

NARRATIVE: CASE EVENT DATE: 20220801
